FAERS Safety Report 8398749-1 (Version None)
Quarter: 2012Q2

REPORT INFORMATION
  Report Type: 
  Country: None (occurrence: None)
  Receive Date: 20120531
  Receipt Date: 20120529
  Transmission Date: 20120825
  Serious: Yes (Death)
  Sender: FDA-Public Use
  Company Number: PHHY2012DK024634

PATIENT
  Sex: Female

DRUGS (7)
  1. AZATHIOPRINE [Concomitant]
     Indication: CONNECTIVE TISSUE DISORDER
  2. CLARITHROMYCIN [Concomitant]
  3. COZAAR [Concomitant]
     Indication: BLOOD PRESSURE
     Dosage: 100 MG, UNK
  4. ONBREZ [Suspect]
     Indication: DYSPNOEA
     Dosage: 150 UG, BID
     Dates: start: 20120301
  5. PENICILLIN [Concomitant]
  6. CENTYL MITE W/POTASSIUM CHLORIDE [Concomitant]
  7. PREDNISOLONE [Concomitant]
     Dosage: 5 MG, QD

REACTIONS (2)
  - DEATH [None]
  - DRUG PRESCRIBING ERROR [None]
